FAERS Safety Report 23556443 (Version 1)
Quarter: 2024Q1

REPORT INFORMATION
  Report Type: Spontaneous
  Country: DE (occurrence: DE)
  Receive Date: 20240223
  Receipt Date: 20240223
  Transmission Date: 20240410
  Serious: Yes (Hospitalization, Other)
  Sender: FDA-Public Use
  Company Number: DE-KRKA-DE2024K01601SPO

PATIENT
  Age: 93 Year
  Sex: Female
  Weight: 50 kg

DRUGS (5)
  1. ZOPICLONE [Suspect]
     Active Substance: ZOPICLONE
     Indication: Product used for unknown indication
     Dosage: UNK (30-70 DOSAGE FORMS)
     Route: 065
     Dates: start: 20240130
  2. AMLODIPINE [Suspect]
     Active Substance: AMLODIPINE BESYLATE
     Indication: Product used for unknown indication
     Dosage: 5 MILLIGRAM (30-70 DOSAGE FORMS)
     Route: 065
     Dates: start: 20240130
  3. TILIDINE [Suspect]
     Active Substance: TILIDINE
     Indication: Product used for unknown indication
     Dosage: UNK (30-70 DOSAGE FORMS)
     Route: 065
     Dates: start: 20240130
  4. TORSEMIDE [Suspect]
     Active Substance: TORSEMIDE
     Indication: Product used for unknown indication
     Dosage: UNK (30-70 DOSAGE FORMS)
     Route: 065
     Dates: start: 20240130
  5. CANDESARTAN CILEXETIL [Suspect]
     Active Substance: CANDESARTAN CILEXETIL
     Indication: Product used for unknown indication
     Dosage: 16 MILLIGRAM ( 30-70 TABLETS  )
     Route: 065
     Dates: start: 20240130

REACTIONS (12)
  - Respiratory failure [Unknown]
  - Bradycardia [Unknown]
  - Hypokalaemia [Recovered/Resolved]
  - Pneumonia [Recovered/Resolved]
  - Suicide attempt [Recovered/Resolved]
  - Intentional overdose [Recovered/Resolved]
  - Balance disorder [Unknown]
  - Hyponatraemia [Recovered/Resolved]
  - Dizziness [Unknown]
  - Dehydration [Unknown]
  - Slow response to stimuli [Unknown]
  - Urinary incontinence [Unknown]

NARRATIVE: CASE EVENT DATE: 20240101
